FAERS Safety Report 25122265 (Version 1)
Quarter: 2025Q1

REPORT INFORMATION
  Report Type: Spontaneous
  Country: US (occurrence: US)
  Receive Date: 20250326
  Receipt Date: 20250326
  Transmission Date: 20250409
  Serious: Yes (Life-Threatening, Other)
  Sender: APOTEX
  Company Number: US-APOTEX-2025AP003667

PATIENT
  Age: 68 Year
  Sex: Male

DRUGS (5)
  1. APIXABAN [Suspect]
     Active Substance: APIXABAN
     Indication: Atrial fibrillation
     Route: 065
  2. APIXABAN [Suspect]
     Active Substance: APIXABAN
     Indication: Ischaemic stroke
     Route: 065
  3. APIXABAN [Suspect]
     Active Substance: APIXABAN
     Indication: Haemorrhagic stroke
     Route: 065
  4. APIXABAN [Suspect]
     Active Substance: APIXABAN
     Dosage: 2.5 MILLIGRAM, BID
     Route: 065
  5. ASPIRIN [Concomitant]
     Active Substance: ASPIRIN
     Indication: Product used for unknown indication
     Route: 065

REACTIONS (3)
  - Hemiparesis [Unknown]
  - Cerebral haemorrhage [Unknown]
  - Thalamus haemorrhage [Unknown]
